FAERS Safety Report 16891495 (Version 1)
Quarter: 2019Q4

REPORT INFORMATION
  Report Type: Spontaneous
  Country: US (occurrence: US)
  Receive Date: 20191007
  Receipt Date: 20191007
  Transmission Date: 20200122
  Serious: Yes (Other)
  Sender: FDA-Public Use
  Company Number: US-APOTEX-2019AP022828

PATIENT

DRUGS (1)
  1. MOMETASONE [Suspect]
     Active Substance: MOMETASONE
     Indication: PRODUCT USED FOR UNKNOWN INDICATION
     Dosage: UNK
     Route: 065

REACTIONS (6)
  - Sinusitis [Unknown]
  - Pharyngitis streptococcal [Unknown]
  - Epistaxis [Unknown]
  - Pneumonia [Unknown]
  - Sepsis [Unknown]
  - Nasal discomfort [Unknown]
